FAERS Safety Report 10723428 (Version 1)
Quarter: 2015Q1

REPORT INFORMATION
  Report Type: Spontaneous
  Country: CN (occurrence: CN)
  Receive Date: 20150120
  Receipt Date: 20150120
  Transmission Date: 20150721
  Serious: Yes (Other)
  Sender: FDA-Public Use
  Company Number: CN-CIPLA LTD.-2015CN00364

PATIENT

DRUGS (9)
  1. DEXAMETHASONE. [Concomitant]
     Active Substance: DEXAMETHASONE
     Indication: PREMEDICATION
     Dosage: 8 MG,15 MIN BEFORE THE CHEMOTHERAPY OF DAY 8
     Route: 042
  2. GEMCITABINE [Suspect]
     Active Substance: GEMCITABINE\GEMCITABINE HYDROCHLORIDE
     Indication: NON-SMALL CELL LUNG CANCER STAGE III
     Dosage: 1,000 MG/M2, ON DAYS 1 AND 8 IN 250 CC SALINE SOLUTION OVER 30 MIN
     Route: 042
  3. CARBOPLATIN. [Suspect]
     Active Substance: CARBOPLATIN
     Indication: NON-SMALL CELL LUNG CANCER STAGE III
     Dosage: (AUC 5, ON DAY 1) IN 500 CC SALINE SOLUTION OVER 1 H THREE CYCLES EVERY
     Route: 058
  4. ONDANSETRON [Concomitant]
     Active Substance: ONDANSETRON
     Indication: PREMEDICATION
     Dosage: 8 MG,15 MIN BEFORE CHEMOTHERAPY OF DAY 1 AND DAY 8
     Route: 042
  5. PREDNISOLONE. [Concomitant]
     Active Substance: PREDNISOLONE
     Indication: PREMEDICATION
     Dosage: 25 MG, ON THE EVENING OF THE DAY BEFORE DAY 1
     Route: 048
  6. PACLITAXEL. [Suspect]
     Active Substance: PACLITAXEL
     Indication: NON-SMALL CELL LUNG CANCER STAGE III
     Dosage: 1-3 MG/ML ON DAY 1 AND DAY 8
     Route: 042
  7. RANITIDINE [Concomitant]
     Active Substance: RANITIDINE\RANITIDINE HYDROCHLORIDE
     Indication: PREMEDICATION
     Dosage: 100 MG, 15 MIN BEFORE THE CHEMOTHERAPY OF DAY 1 AND DAY 8
     Route: 042
  8. METHYLPREDNISOLONE. [Concomitant]
     Active Substance: METHYLPREDNISOLONE
     Indication: PREMEDICATION
     Dosage: 25 MG ON THE EVENING OF THE DAY BEFORE DAY 1
     Route: 048
  9. CHLORPHENIRAMINE [Concomitant]
     Active Substance: CHLORPHENIRAMINE
     Indication: PREMEDICATION
     Dosage: 10 MG, 15 MIN BEFORE CHEMOTHERAPY OF DAY 1
     Route: 042

REACTIONS (1)
  - Acute hepatic failure [Unknown]
